FAERS Safety Report 7737435-5 (Version None)
Quarter: 2011Q3

REPORT INFORMATION
  Report Type: 
  Country: None (occurrence: None)
  Receive Date: 20110908
  Receipt Date: 20110824
  Transmission Date: 20111222
  Serious: Yes (Death, Hospitalization)
  Sender: FDA-Public Use
  Company Number: US-GLAXOSMITHKLINE-A0884814A

PATIENT
  Age: 73 Year
  Sex: Male

DRUGS (1)
  1. AVANDIA [Suspect]
     Indication: DIABETES MELLITUS
     Dosage: 4MG PER DAY
     Route: 048
     Dates: start: 20000209, end: 20040826

REACTIONS (7)
  - CORONARY ARTERY DISEASE [None]
  - CARDIAC DISORDER [None]
  - ANGINA PECTORIS [None]
  - CARDIAC ARREST [None]
  - ACUTE RESPIRATORY FAILURE [None]
  - DEATH [None]
  - CARDIAC FAILURE CONGESTIVE [None]
